FAERS Safety Report 8830750 (Version 1)
Quarter: 2012Q4

REPORT INFORMATION
  Report Type: 
  Country: US (occurrence: US)
  Receive Date: 20121009
  Receipt Date: 20121009
  Transmission Date: 20130627
  Serious: No
  Sender: FDA-Public Use
  Company Number: US-009507513-1209USA011715

PATIENT
  Sex: Female

DRUGS (1)
  1. ZIOPTAN [Suspect]
     Indication: GLAUCOMA
     Dosage: normal dose, UNK
     Route: 047
     Dates: end: 2012

REACTIONS (3)
  - Balance disorder [Recovered/Resolved]
  - Pain [Recovered/Resolved]
  - Vision blurred [Recovered/Resolved]
